FAERS Safety Report 10286728 (Version 5)
Quarter: 2014Q3

REPORT INFORMATION
  Report Type: Spontaneous
  Country: BR (occurrence: BR)
  Receive Date: 20140709
  Receipt Date: 20140821
  Transmission Date: 20150326
  Serious: Yes (Death, Hospitalization, Other)
  Sender: FDA-Public Use
  Company Number: BR-PFIZER INC-2014188076

PATIENT
  Age: 88 Year
  Sex: Female

DRUGS (3)
  1. ERANZ [Suspect]
     Active Substance: DONEPEZIL HYDROCHLORIDE
     Indication: DEMENTIA ALZHEIMER^S TYPE
     Dosage: 1 TABLET STRENGTH 5 MG A DAY
     Dates: start: 2009
  2. XALATAN [Suspect]
     Active Substance: LATANOPROST
     Indication: CATARACT
     Dosage: 3 UG (2 DROPS), 1X/DAY
     Dates: start: 2004
  3. XALATAN [Suspect]
     Active Substance: LATANOPROST
     Indication: GLAUCOMA

REACTIONS (6)
  - Cardiac failure congestive [Fatal]
  - Pneumonia [Fatal]
  - Urinary tract infection [Unknown]
  - Pulmonary oedema [Fatal]
  - Hypertension [Unknown]
  - Multi-organ failure [Fatal]

NARRATIVE: CASE EVENT DATE: 201405
